FAERS Safety Report 7079216-4 (Version None)
Quarter: 2010Q4

REPORT INFORMATION
  Report Type: 
  Country: None (occurrence: None)
  Receive Date: 20101102
  Receipt Date: 20101022
  Transmission Date: 20110411
  Serious: Yes (Disabling)
  Sender: FDA-Public Use
  Company Number: US-NOVOPROD-304867

PATIENT
  Sex: Female
  Weight: 75.6 kg

DRUGS (8)
  1. IDEG FLEXPEN [Suspect]
     Indication: TYPE 1 DIABETES MELLITUS
     Dosage: 34 IU, QD
     Route: 058
     Dates: start: 20091006, end: 20100221
  2. NOVORAPID FLEXPEN [Suspect]
     Indication: TYPE 1 DIABETES MELLITUS
     Dosage: 17 IU, QD
     Route: 058
     Dates: start: 20091006, end: 20100221
  3. CALTRATE                           /00108001/ [Concomitant]
     Indication: SUPPLEMENTATION THERAPY
     Dosage: 1000 MG, QD
     Route: 048
     Dates: start: 20090924
  4. ASPIRIN [Concomitant]
     Indication: PROPHYLAXIS
     Dosage: 81 MG, QD
     Route: 048
     Dates: start: 20090924
  5. MULTIVITAMIN                       /00097801/ [Concomitant]
     Indication: SUPPLEMENTATION THERAPY
     Dosage: 1 TAB, QD
     Route: 048
     Dates: start: 20090924
  6. VITAMIN A [Concomitant]
     Indication: VITAMIN D DEFICIENCY
     Dosage: 50000 IU, QD
     Route: 048
     Dates: start: 20090926
  7. PHENTERMINE [Concomitant]
     Indication: OVERWEIGHT
     Dosage: 30 MG, QD
     Route: 048
     Dates: start: 20100111
  8. PHENTERMINE [Concomitant]
     Indication: DECREASED APPETITE

REACTIONS (1)
  - TENOSYNOVITIS [None]
